FAERS Safety Report 5689731-3 (Version None)
Quarter: 2008Q1

REPORT INFORMATION
  Report Type: 
  Country: None (occurrence: None)
  Receive Date: 20080328
  Receipt Date: 20080319
  Transmission Date: 20080703
  Serious: Yes (Other)
  Sender: FDA-Public Use
  Company Number: 2008-00942

PATIENT
  Age: 44 Year
  Sex: Male
  Weight: 60.7 kg

DRUGS (2)
  1. VELCADE [Suspect]
     Indication: LARYNGEAL CANCER
     Dosage: 1.30 MG/M2,  IV BOLUS
     Route: 040
     Dates: start: 20070829
  2. IRINOTECAN HCL [Suspect]
     Indication: LARYNGEAL CANCER
     Dosage: 125.00 MG/M2,  INTRAVENOUS
     Route: 042
     Dates: start: 20070829, end: 20071127

REACTIONS (8)
  - ASTHENIA [None]
  - DEHYDRATION [None]
  - DIARRHOEA [None]
  - DIZZINESS [None]
  - HAEMOGLOBIN DECREASED [None]
  - NAUSEA [None]
  - VOMITING [None]
  - WEIGHT DECREASED [None]
